FAERS Safety Report 4457963-8 (Version None)
Quarter: 2004Q3

REPORT INFORMATION
  Report Type: 
  Country: None (occurrence: None)
  Receive Date: 20040922
  Receipt Date: 20040913
  Transmission Date: 20050211
  Serious: Yes (Hospitalization)
  Sender: FDA-Public Use
  Company Number: 04P-056-0263294-00

PATIENT
  Age: 30 Year
  Sex: Female
  Weight: 47 kg

DRUGS (3)
  1. KALETRA [Suspect]
     Indication: HIV INFECTION
     Dosage: 3 DOSAGE FORM, 2 IN 1 D, PER ORAL
     Route: 048
     Dates: start: 20040115
  2. TELITHROMYCINE [Suspect]
     Indication: BRONCHITIS ACUTE
     Dosage: 1 DOSAGE FORM, 1 IN 1D, PER ORAL
     Route: 048
     Dates: start: 20040315, end: 20040315
  3. ZIDOVUDINE W/ LAMIVUDINE [Concomitant]

REACTIONS (5)
  - BRONCHITIS ACUTE [None]
  - DRUG INTERACTION [None]
  - EYE DISORDER [None]
  - VISION BLURRED [None]
  - VISUAL ACUITY REDUCED [None]
